FAERS Safety Report 16676917 (Version 2)
Quarter: 2019Q3

REPORT INFORMATION
  Report Type: Spontaneous
  Country: US (occurrence: US)
  Receive Date: 20190807
  Receipt Date: 20190919
  Transmission Date: 20191004
  Serious: No
  Sender: FDA-Public Use
  Company Number: US-AMGEN-USASP2019122590

PATIENT
  Age: 70 Year
  Sex: Female
  Weight: 51.25 kg

DRUGS (2)
  1. PROLIA [Suspect]
     Active Substance: DENOSUMAB
     Indication: OSTEOPOROSIS POSTMENOPAUSAL
     Dosage: 60 MILLIGRAM, Q6MO
     Route: 065
     Dates: start: 20180301
  2. CALCIUM [Concomitant]
     Active Substance: CALCIUM
     Indication: SENILE OSTEOPOROSIS
     Dosage: 250 MILLIGRAM, QD
     Dates: start: 20171222

REACTIONS (2)
  - Sleep disorder due to a general medical condition [Unknown]
  - Pain in extremity [Recovering/Resolving]

NARRATIVE: CASE EVENT DATE: 2019
